FAERS Safety Report 5653811-9 (Version None)
Quarter: 2008Q1

REPORT INFORMATION
  Report Type: 
  Country: None (occurrence: None)
  Receive Date: 20080131
  Receipt Date: 20071008
  Transmission Date: 20080703
  Serious: No
  Sender: FDA-Public Use
  Company Number: US200710002261

PATIENT
  Age: 65 Year
  Sex: Female
  Weight: 96.1 kg

DRUGS (10)
  1. BYETTA [Suspect]
     Indication: TYPE 2 DIABETES MELLITUS
     Dosage: 5 UG, 2/D, SUBCUTANEOUS
     Route: 058
     Dates: start: 20070801, end: 20070925
  2. GLIPIZIDE [Concomitant]
  3. GLUCOPHAGE XR (METFORMIN  HYDROCHLORIDE) [Concomitant]
  4. VERPAMIL (VERAPAMIL HYDROCHLORIDE) [Concomitant]
  5. LISINOPRIL [Concomitant]
  6. NEXIUM [Concomitant]
  7. AVANDIA [Concomitant]
  8. CRESTOR [Concomitant]
  9. OMACOR [Concomitant]
  10. FOLTX (CYANOCOBALAMIN, FOLIC ACID, PYRIDOXINE) [Concomitant]

REACTIONS (6)
  - ABDOMINAL PAIN UPPER [None]
  - GASTROINTESTINAL DISORDER [None]
  - NAUSEA [None]
  - VOMITING [None]
  - WEIGHT DECREASED [None]
  - WHITE BLOOD CELL COUNT INCREASED [None]
